FAERS Safety Report 4585732-7 (Version None)
Quarter: 2005Q1

REPORT INFORMATION
  Report Type: 
  Country: None (occurrence: None)
  Receive Date: 20050217
  Receipt Date: 20050207
  Transmission Date: 20050727
  Serious: Yes (Hospitalization)
  Sender: FDA-Public Use
  Company Number: US-GLAXOSMITHKLINE-A0544208A

PATIENT
  Age: 51 Year
  Sex: Female

DRUGS (3)
  1. NICODERM CQ [Suspect]
     Indication: SMOKING CESSATION THERAPY
     Route: 062
     Dates: start: 20040101, end: 20040101
  2. COMMIT [Suspect]
     Indication: SMOKING CESSATION THERAPY
     Route: 002
     Dates: start: 20050201
  3. AMERICAN FARE NTS, 21MG STEP 1 [Suspect]
     Indication: SMOKING CESSATION THERAPY
     Route: 062
     Dates: start: 20050126

REACTIONS (12)
  - ANXIETY [None]
  - APPLICATION SITE DERMATITIS [None]
  - BACK PAIN [None]
  - BENIGN LARYNGEAL NEOPLASM [None]
  - BENIGN NEOPLASM OF THYROID GLAND [None]
  - CHEST PAIN [None]
  - DEPRESSION [None]
  - DRUG INEFFECTIVE [None]
  - INTENTIONAL MISUSE [None]
  - LOCAL SWELLING [None]
  - STRESS [None]
  - URINARY TRACT INFECTION [None]
